FAERS Safety Report 25461550 (Version 2)
Quarter: 2025Q4

REPORT INFORMATION
  Report Type: Spontaneous
  Country: US (occurrence: US)
  Receive Date: 20250620
  Receipt Date: 20251203
  Transmission Date: 20260119
  Serious: Yes (Other)
  Sender: COOPERSURGICAL
  Company Number: US-COOPERSURGICAL, INC.-2025CPS004837

PATIENT
  Sex: Female
  Weight: 86.168 kg

DRUGS (1)
  1. PARAGARD T 380A [Suspect]
     Active Substance: COPPER
     Indication: Contraception
     Dosage: UNK
     Route: 015
     Dates: start: 20150825

REACTIONS (10)
  - Surgery [Recovered/Resolved]
  - Device breakage [Recovered/Resolved]
  - Foreign body in urogenital tract [Recovered/Resolved]
  - Complication of device removal [Recovered/Resolved]
  - Sensation of foreign body [Recovered/Resolved]
  - Emotional distress [Unknown]
  - Heavy menstrual bleeding [Unknown]
  - Menstruation irregular [Unknown]
  - Abnormal uterine bleeding [Unknown]
  - Pain [Recovered/Resolved]

NARRATIVE: CASE EVENT DATE: 20150101
